FAERS Safety Report 4761073-X (Version None)
Quarter: 2005Q3

REPORT INFORMATION
  Report Type: 
  Country: None (occurrence: None)
  Receive Date: 20050901
  Receipt Date: 20050826
  Transmission Date: 20060218
  Serious: Yes (Hospitalization)
  Sender: FDA-Public Use
  Company Number: DEU-2005-0001633

PATIENT
  Age: 64 Year
  Sex: Female
  Weight: 70 kg

DRUGS (4)
  1. OXY CR TAB 10MG (OXY CR TAB 10 MG) (OXYCODONE HYDROCHLORIDE) CR TABLET [Suspect]
     Indication: PAIN
     Dosage: SEE IMAGE
     Route: 048
     Dates: start: 20050405, end: 20050413
  2. OXY CR TAB 10MG (OXY CR TAB 10 MG) (OXYCODONE HYDROCHLORIDE) CR TABLET [Suspect]
     Indication: PAIN
     Dosage: SEE IMAGE
     Route: 048
     Dates: start: 20050414, end: 20050624
  3. DIPYRONE TAB [Concomitant]
  4. ANTIEPILEPTICS [Concomitant]

REACTIONS (1)
  - NO ADVERSE EFFECT [None]
